FAERS Safety Report 5195957-8 (Version None)
Quarter: 2007Q1

REPORT INFORMATION
  Report Type: 
  Country: None (occurrence: None)
  Receive Date: 20070102
  Receipt Date: 20061222
  Transmission Date: 20070707
  Serious: Yes (Other)
  Sender: FDA-Public Use
  Company Number: US-ROCHE-466417

PATIENT
  Age: 52 Year
  Sex: Male

DRUGS (2)
  1. PEGASYS [Suspect]
     Route: 058
     Dates: start: 20060313
  2. RIBAVIRIN [Suspect]
     Route: 048
     Dates: start: 20060313

REACTIONS (8)
  - BLINDNESS [None]
  - DEPRESSION [None]
  - HOMICIDAL IDEATION [None]
  - MONOPARESIS [None]
  - PARALYSIS [None]
  - SUICIDAL IDEATION [None]
  - VISION BLURRED [None]
  - VOMITING [None]
